FAERS Safety Report 15227164 (Version 2)
Quarter: 2018Q3

REPORT INFORMATION
  Report Type: Spontaneous
  Country: FI (occurrence: FI)
  Receive Date: 20180801
  Receipt Date: 20180813
  Transmission Date: 20181010
  Serious: Yes (Other)
  Sender: FDA-Public Use
  Company Number: FI-ELI_LILLY_AND_COMPANY-FI201807009820

PATIENT
  Age: 37 Year
  Sex: Male

DRUGS (2)
  1. SERENASE                           /00027401/ [Concomitant]
     Active Substance: HALOPERIDOL
     Indication: PRODUCT USED FOR UNKNOWN INDICATION
     Dosage: 1 MG, BID
     Route: 065
  2. ZYPADHERA [Suspect]
     Active Substance: OLANZAPINE PAMOATE
     Indication: PRODUCT USED FOR UNKNOWN INDICATION
     Dosage: UNK UNK, UNKNOWN
     Route: 030

REACTIONS (8)
  - Blood pressure increased [Unknown]
  - Fatigue [Recovered/Resolved]
  - Dysarthria [Recovered/Resolved]
  - Feeling abnormal [Recovered/Resolved]
  - General physical condition abnormal [Recovered/Resolved]
  - Asthenia [Recovered/Resolved]
  - Heart rate increased [Recovered/Resolved]
  - Dizziness [Recovered/Resolved]

NARRATIVE: CASE EVENT DATE: 20180718
